FAERS Safety Report 12190933 (Version 2)
Quarter: 2016Q1

REPORT INFORMATION
  Report Type: Spontaneous
  Country: ES (occurrence: ES)
  Receive Date: 20160318
  Receipt Date: 20160321
  Transmission Date: 20160526
  Serious: Yes (Other)
  Sender: FDA-Public Use
  Company Number: ES-PFIZER INC-2016157107

PATIENT
  Age: 79 Year
  Sex: Female

DRUGS (4)
  1. HIDROFEROL CHOQUE [Concomitant]
     Indication: HYPERURICAEMIA
     Dosage: 3 MG, MONTHLY
     Route: 048
  2. SERTRALINE [Concomitant]
     Active Substance: SERTRALINE HYDROCHLORIDE
     Route: 048
     Dates: end: 20160223
  3. LYRICA [Suspect]
     Active Substance: PREGABALIN
     Dosage: 75 MG, 1X/DAY
     Route: 048
     Dates: start: 2016, end: 20160223
  4. LEXATIN [Concomitant]
     Active Substance: BROMAZEPAM
     Dosage: 1.5 MG, 3X/DAY
     Route: 048

REACTIONS (4)
  - Confusional state [Recovered/Resolved]
  - Withdrawal syndrome [Recovered/Resolved]
  - Tremor [Recovered/Resolved]
  - Balance disorder [Recovered/Resolved]

NARRATIVE: CASE EVENT DATE: 20160224
